FAERS Safety Report 20571142 (Version 1)
Quarter: 2022Q1

REPORT INFORMATION
  Report Type: Spontaneous
  Country: JP (occurrence: JP)
  Receive Date: 20220309
  Receipt Date: 20220309
  Transmission Date: 20220424
  Serious: Yes (Other)
  Sender: FDA-Public Use
  Company Number: JP-ASTELLAS-2022JP003844

PATIENT
  Age: 38 Year
  Sex: Female

DRUGS (2)
  1. PROGRAF [Suspect]
     Active Substance: TACROLIMUS
     Indication: Lupus nephritis
     Dosage: 3 MG/DAY, UNKNOWN FREQ.
     Route: 048
  2. PREDONINE [Concomitant]
     Active Substance: PREDNISOLONE
     Indication: Product used for unknown indication
     Dosage: 5 MG/DAY, UNKNOWN FREQ.
     Route: 048

REACTIONS (5)
  - Systemic lupus erythematosus [Unknown]
  - Acute kidney injury [Unknown]
  - Proteinuria [Unknown]
  - Haematuria [Unknown]
  - Serositis [Unknown]
